FAERS Safety Report 9226521 (Version 2)
Quarter: 2013Q2

REPORT INFORMATION
  Report Type: Spontaneous
  Country: CA (occurrence: CA)
  Receive Date: 20130412
  Receipt Date: 20130509
  Transmission Date: 20140414
  Serious: Yes (Other)
  Sender: FDA-Public Use
  Company Number: CA-AMGEN-CANSP2013024697

PATIENT
  Age: 55 Year
  Sex: Female

DRUGS (4)
  1. NEUPOGEN [Suspect]
     Indication: BREAST CANCER STAGE II
     Dosage: 300 MUG, ONCE DAY
     Route: 058
     Dates: start: 20130328
  2. FLUOROURACIL [Concomitant]
     Indication: BREAST CANCER STAGE II
     Dosage: UNK
     Route: 042
     Dates: start: 20130322, end: 20130322
  3. EPIRUBICIN [Concomitant]
     Indication: BREAST CANCER STAGE II
     Dosage: UNK
     Route: 042
     Dates: start: 20130322, end: 20130322
  4. CYCLOPHOSPHAMIDE [Concomitant]
     Indication: BREAST CANCER STAGE II
     Dosage: UNK
     Route: 042
     Dates: start: 20130322, end: 20130322

REACTIONS (4)
  - Chest pain [Recovered/Resolved]
  - Heart rate increased [Recovered/Resolved]
  - Abdominal pain [Recovered/Resolved]
  - Arthralgia [Recovered/Resolved]
